FAERS Safety Report 9764574 (Version 3)
Quarter: 2014Q1

REPORT INFORMATION
  Report Type: Report from Study
  Country: US (occurrence: US)
  Receive Date: 20131217
  Receipt Date: 20140307
  Transmission Date: 20141002
  Serious: Yes (Hospitalization, Other)
  Sender: FDA-Public Use
  Company Number: US-ROCHE-1316203

PATIENT
  Sex: 0

DRUGS (4)
  1. PEG-INTERFERON ALFA 2A [Suspect]
     Indication: HEPATITIS C
     Route: 065
  2. RIBAVIRIN [Suspect]
     Indication: HEPATITIS C
     Route: 065
  3. TELAPREVIR [Suspect]
     Indication: HEPATITIS C
     Route: 065
  4. PEGINTERFERON ALFA-2B [Suspect]
     Indication: HEPATITIS C
     Route: 065

REACTIONS (26)
  - Hypokalaemia [Unknown]
  - Hyperkalaemia [Unknown]
  - Inflammation [Unknown]
  - Colitis [Unknown]
  - Renal failure [Unknown]
  - Syncope [Unknown]
  - Hypoaesthesia [Unknown]
  - Hepatic failure [Unknown]
  - Infection [Unknown]
  - Dermatitis [Unknown]
  - Arrhythmia [Unknown]
  - Dyspnoea [Unknown]
  - Appendicitis [Unknown]
  - Anaemia [Unknown]
  - Hepatic encephalopathy [Unknown]
  - Anorectal discomfort [Unknown]
  - Skin burning sensation [Unknown]
  - Ascites [Unknown]
  - Renal failure acute [Unknown]
  - Virologic failure [Unknown]
  - Drug ineffective [Unknown]
  - Fatigue [Unknown]
  - Rash [Unknown]
  - Depression [Unknown]
  - Dehydration [Unknown]
  - Diarrhoea [Unknown]
